FAERS Safety Report 17977463 (Version 2)
Quarter: 2021Q1

REPORT INFORMATION
  Report Type: Report from Study
  Country: None (occurrence: CO)
  Receive Date: 20200703
  Receipt Date: 20210201
  Transmission Date: 20210419
  Serious: Yes (Other)
  Sender: FDA-Public Use
  Company Number: CO-ABBVIE-20K-036-3468550-00

PATIENT
  Age: 51 Year
  Sex: Male
  Weight: 89 kg

DRUGS (6)
  1. HUMIRA [Suspect]
     Active Substance: ADALIMUMAB
     Indication: PSORIATIC ARTHROPATHY
     Route: 058
     Dates: start: 20130705
  2. HUMIRA [Suspect]
     Active Substance: ADALIMUMAB
     Indication: PSORIATIC ARTHROPATHY
     Route: 058
  3. PSYLLIUM FIBRE [Suspect]
     Active Substance: HERBALS\PLANTAGO OVATA SEED COAT
     Indication: COLITIS ULCERATIVE
     Route: 065
  4. POLIETILENGLICOL [Suspect]
     Active Substance: POLYETHYLENE GLYCOL 3350
     Indication: CONSTIPATION
     Route: 065
  5. PANTOPRAZOLE [Suspect]
     Active Substance: PANTOPRAZOLE
     Indication: GASTRITIS
     Route: 065
     Dates: start: 202011
  6. MESALAZINE [Suspect]
     Active Substance: MESALAMINE
     Indication: COLITIS ULCERATIVE
     Dosage: 2000 AND 1000 IN GRANULES.
     Route: 065

REACTIONS (14)
  - Skin plaque [Unknown]
  - Dysphonia [Not Recovered/Not Resolved]
  - Psoriasis [Unknown]
  - Abdominal pain upper [Not Recovered/Not Resolved]
  - Colitis ulcerative [Not Recovered/Not Resolved]
  - Gastritis [Not Recovered/Not Resolved]
  - Chest pain [Unknown]
  - Constipation [Not Recovered/Not Resolved]
  - Rectal haemorrhage [Recovered/Resolved]
  - Influenza [Not Recovered/Not Resolved]
  - Haematochezia [Not Recovered/Not Resolved]
  - Aphonia [Not Recovered/Not Resolved]
  - Drug ineffective [Unknown]
  - Productive cough [Not Recovered/Not Resolved]

NARRATIVE: CASE EVENT DATE: 2020
